APPROVED DRUG PRODUCT: CEVIMELINE HYDROCHLORIDE
Active Ingredient: CEVIMELINE HYDROCHLORIDE
Strength: 30MG
Dosage Form/Route: CAPSULE;ORAL
Application: A216682 | Product #001 | TE Code: AB
Applicant: RUBICON RESEARCH LTD
Approved: Apr 6, 2023 | RLD: No | RS: No | Type: RX